FAERS Safety Report 9702689 (Version 1)
Quarter: 2013Q4

REPORT INFORMATION
  Report Type: Spontaneous
  Country: US (occurrence: US)
  Receive Date: 20131121
  Receipt Date: 20131121
  Transmission Date: 20140711
  Serious: No
  Sender: FDA-Public Use
  Company Number: US-BAXTER-2013BAX045308

PATIENT
  Sex: Female

DRUGS (3)
  1. GAMMAGARD LIQUID [Suspect]
     Indication: PRODUCT USED FOR UNKNOWN INDICATION
     Dates: start: 201111
  2. GAMMAGARD LIQUID [Suspect]
     Dates: start: 20131024, end: 20131024
  3. GAMMAGARD LIQUID [Suspect]
     Dates: start: 20131107, end: 20131107

REACTIONS (2)
  - Urticaria [Unknown]
  - Pruritus [Unknown]
